FAERS Safety Report 6483379-9 (Version None)
Quarter: 2009Q4

REPORT INFORMATION
  Report Type: 
  Country: None (occurrence: None)
  Receive Date: 20091209
  Receipt Date: 20091207
  Transmission Date: 20100525
  Serious: Yes (Hospitalization, Other)
  Sender: FDA-Public Use
  Company Number: US-ROXANE LABORATORIES, INC.-2009-RO-01228RO

PATIENT
  Age: 17 Year
  Sex: Male

DRUGS (9)
  1. PREDNISONE [Suspect]
     Indication: B PRECURSOR TYPE ACUTE LEUKAEMIA
     Route: 048
  2. METHOTREXATE [Suspect]
     Indication: B PRECURSOR TYPE ACUTE LEUKAEMIA
     Route: 037
  3. MERCAPTOPURINE [Suspect]
     Indication: B PRECURSOR TYPE ACUTE LEUKAEMIA
     Route: 048
  4. VINCRISTINE [Suspect]
     Indication: B PRECURSOR TYPE ACUTE LEUKAEMIA
  5. DAUNOMYCIN [Suspect]
     Indication: B PRECURSOR TYPE ACUTE LEUKAEMIA
  6. ASPARAGINASE [Suspect]
     Indication: B PRECURSOR TYPE ACUTE LEUKAEMIA
  7. CYTOSINE ARABINOSIDE [Suspect]
     Indication: B PRECURSOR TYPE ACUTE LEUKAEMIA
  8. DEXAMETHASONE TAB [Concomitant]
     Indication: NEUROTOXICITY
  9. LEUCOVORIN CALCIUM [Concomitant]
     Indication: NEUROTOXICITY

REACTIONS (2)
  - NEUROTOXICITY [None]
  - PANCREATITIS [None]
